FAERS Safety Report 9218957 (Version 1)
Quarter: 2013Q2

REPORT INFORMATION
  Report Type: Spontaneous
  Country: JP (occurrence: JP)
  Receive Date: 20130409
  Receipt Date: 20130409
  Transmission Date: 20140414
  Serious: Yes (Hospitalization, Other)
  Sender: FDA-Public Use
  Company Number: JP-JNJFOC-20130400054

PATIENT
  Age: 50 Year
  Sex: Male

DRUGS (3)
  1. DUROTEP MT [Suspect]
     Indication: PAIN
     Route: 062
  2. PREGABALIN [Concomitant]
     Indication: PAIN
     Route: 048
  3. AMITRIPTYLINE HYDROCHLORIDE [Concomitant]
     Indication: PAIN
     Route: 065

REACTIONS (9)
  - Pneumonia [Unknown]
  - Depressed level of consciousness [Recovering/Resolving]
  - Sepsis [Unknown]
  - Respiratory depression [Unknown]
  - Overdose [Unknown]
  - Pyrexia [Unknown]
  - Somnolence [Unknown]
  - Vomiting [Unknown]
  - Sputum retention [Unknown]
